FAERS Safety Report 13350081 (Version 3)
Quarter: 2017Q2

REPORT INFORMATION
  Report Type: Spontaneous
  Country: IE (occurrence: IE)
  Receive Date: 20170320
  Receipt Date: 20170418
  Transmission Date: 20170830
  Serious: Yes (Death, Hospitalization)
  Sender: FDA-Public Use
  Company Number: IE-BAYER-2017-045221

PATIENT
  Age: 83 Year
  Sex: Male

DRUGS (1)
  1. XOFIGO [Suspect]
     Active Substance: RADIUM RA-223 DICHLORIDE
     Indication: HORMONE-REFRACTORY PROSTATE CANCER
     Dosage: COMPLETED 3 CYCLES

REACTIONS (2)
  - Thrombocytopenia [None]
  - Death [Fatal]

NARRATIVE: CASE EVENT DATE: 20170215
